FAERS Safety Report 22062012 (Version 2)
Quarter: 2023Q1

REPORT INFORMATION
  Report Type: Spontaneous
  Country: NL (occurrence: NL)
  Receive Date: 20230304
  Receipt Date: 20230322
  Transmission Date: 20230418
  Serious: Yes (Hospitalization, Other)
  Sender: FDA-Public Use
  Company Number: NL-MLMSERVICE-20230216-4099148-1

PATIENT
  Age: 43 Year
  Sex: Female
  Weight: 69.7 kg

DRUGS (5)
  1. VANCOMYCIN [Suspect]
     Active Substance: VANCOMYCIN
     Indication: Vascular device infection
     Dosage: 1 GRAM, 3 TIMES A DAY (43 MG/KG/D)
     Route: 042
  2. VANCOMYCIN [Suspect]
     Active Substance: VANCOMYCIN
     Indication: Staphylococcal infection
     Dosage: 10 GRAM, ONCE A DAY (143.5 MG/KG)
     Route: 042
  3. VANCOMYCIN [Suspect]
     Active Substance: VANCOMYCIN
     Dosage: 8 GRAM, ONCE A DAY (114.8 MG/KG)
     Route: 042
  4. VANCOMYCIN [Suspect]
     Active Substance: VANCOMYCIN
     Dosage: 4 GRAM, ONCE A DAY (57 MG/KG)
     Route: 042
  5. VANCOMYCIN [Suspect]
     Active Substance: VANCOMYCIN
     Dosage: 1.5 GRAM, 3 TIMES A DAY
     Route: 042

REACTIONS (5)
  - Antibiotic level below therapeutic [Recovered/Resolved]
  - Nausea [Recovered/Resolved]
  - Nephropathy toxic [Recovered/Resolved]
  - Abdominal discomfort [Recovered/Resolved]
  - Off label use [Unknown]
